FAERS Safety Report 8090805 (Version 2)
Quarter: 2013Q2

REPORT INFORMATION
  Report Type: Spontaneous
  Country: US (occurrence: US)
  Receive Date: 20110815
  Receipt Date: 20130419
  Transmission Date: 20140414
  Serious: Yes (Life-Threatening, Other)
  Sender: FDA-Public Use
  Company Number: US-BAYER-2011-072612

PATIENT
  Age: 17 Year
  Sex: Female

DRUGS (7)
  1. YASMIN [Suspect]
  2. YAZ [Suspect]
  3. OCELLA [Suspect]
  4. ALBUTEROL [Concomitant]
  5. ADVAIR [Concomitant]
  6. PAXIL [Concomitant]
     Dosage: 40 MG, 1 A DAY
  7. PROZAC [Concomitant]
     Dosage: 40 MG, 1 A DAY

REACTIONS (7)
  - Cerebrovascular accident [None]
  - Brain injury [None]
  - Pain [None]
  - General physical health deterioration [None]
  - Anxiety [None]
  - Anhedonia [None]
  - Convulsion [None]
